FAERS Safety Report 16488963 (Version 1)
Quarter: 2019Q2

REPORT INFORMATION
  Report Type: Spontaneous
  Country: US (occurrence: US)
  Receive Date: 20190628
  Receipt Date: 20190628
  Transmission Date: 20190711
  Serious: Yes (Other)
  Sender: FDA-Public Use
  Company Number: US-BEH-2019103430

PATIENT
  Sex: Female

DRUGS (1)
  1. CORIFACT [Suspect]
     Active Substance: FACTOR XIII CONCENTRATE (HUMAN)
     Indication: COAGULATION FACTOR DEFICIENCY
     Dosage: 2500 INTERNATIONAL UNIT, QMT
     Route: 042
     Dates: start: 201703

REACTIONS (1)
  - Gastroenteritis viral [Unknown]
